FAERS Safety Report 12151047 (Version 5)
Quarter: 2016Q2

REPORT INFORMATION
  Report Type: Spontaneous
  Country: US (occurrence: US)
  Receive Date: 20160304
  Receipt Date: 20160601
  Transmission Date: 20160815
  Serious: Yes (Hospitalization)
  Sender: FDA-Public Use
  Company Number: US-ACTELION-A-US2016-132215

PATIENT
  Age: 31 Year
  Sex: Female

DRUGS (1)
  1. VELETRI [Suspect]
     Active Substance: EPOPROSTENOL
     Indication: PULMONARY ARTERIAL HYPERTENSION
     Dosage: 21 NG/KG, PER MIN
     Route: 042
     Dates: start: 20150710

REACTIONS (11)
  - Suicidal ideation [Unknown]
  - Condition aggravated [Unknown]
  - Fatigue [Unknown]
  - Pulmonary arterial hypertension [Unknown]
  - Oedema peripheral [Unknown]
  - Device issue [Unknown]
  - Chest pain [Unknown]
  - Dyspnoea [Unknown]
  - Incorrect product storage [Unknown]
  - Extrasystoles [Unknown]
  - Anxiety [Unknown]

NARRATIVE: CASE EVENT DATE: 201603
